FAERS Safety Report 13972219 (Version 1)
Quarter: 2017Q3

REPORT INFORMATION
  Report Type: Spontaneous
  Country: US (occurrence: None)
  Receive Date: 20170914
  Receipt Date: 20170914
  Transmission Date: 20171128
  Serious: No
  Sender: FDA-Public Use
  Company Number: None

PATIENT
  Age: 77 Year
  Sex: Male

DRUGS (1)
  1. STIVARGA [Suspect]
     Active Substance: REGORAFENIB
     Indication: COLON CANCER
     Dosage: 160MG DAILY FOR 21 DAYS ON THEN 7 DAYS OFF ORAL
     Route: 048
     Dates: start: 20170718, end: 20170829

REACTIONS (3)
  - Thrombocytopenia [None]
  - Mental status changes [None]
  - Urinary tract infection [None]

NARRATIVE: CASE EVENT DATE: 20160810
